FAERS Safety Report 7220123-1 (Version None)
Quarter: 2011Q1

REPORT INFORMATION
  Report Type: 
  Country: None (occurrence: None)
  Receive Date: 20110111
  Receipt Date: 20101230
  Transmission Date: 20110831
  Serious: Yes (Other)
  Sender: FDA-Public Use
  Company Number: PHHY2010US89847

PATIENT
  Age: 49 Year
  Sex: Female

DRUGS (2)
  1. MYCOPHENOLATE MOFETIL [Suspect]
     Dosage: 500 MG, TWICE DAILY
  2. PREDNISONE [Suspect]

REACTIONS (10)
  - COLITIS [None]
  - METABOLIC ACIDOSIS [None]
  - HYPOALBUMINAEMIA [None]
  - HYPOKALAEMIA [None]
  - ANAEMIA [None]
  - LEUKOPENIA [None]
  - OESOPHAGITIS ULCERATIVE [None]
  - DIARRHOEA [None]
  - WEIGHT DECREASED [None]
  - FATIGUE [None]
